FAERS Safety Report 18344418 (Version 1)
Quarter: 2020Q4

REPORT INFORMATION
  Report Type: Spontaneous
  Country: SE (occurrence: SE)
  Receive Date: 20201005
  Receipt Date: 20201005
  Transmission Date: 20210114
  Serious: Yes (Hospitalization, Other)
  Sender: FDA-Public Use
  Company Number: SE-PERRIGO-20SE013994

PATIENT
  Age: 54 Year
  Sex: Male

DRUGS (1)
  1. PARACETAMOL [Suspect]
     Active Substance: ACETAMINOPHEN
     Indication: ANXIETY
     Dosage: 50 G (100 ? 500 MG)
     Route: 054

REACTIONS (3)
  - Nausea [Unknown]
  - Intentional overdose [Recovering/Resolving]
  - Drug level increased [Recovering/Resolving]
